FAERS Safety Report 9061606 (Version 1)
Quarter: 2013Q1

REPORT INFORMATION
  Report Type: Spontaneous
  Country: US (occurrence: None)
  Receive Date: 20130208
  Receipt Date: 20130208
  Transmission Date: 20140127
  Serious: Yes (Hospitalization, Disabling)
  Sender: FDA-Public Use
  Company Number: None

PATIENT
  Age: 30 Year
  Sex: Female
  Weight: 71.67 kg

DRUGS (1)
  1. LEVAQUIN 500MG UNKNOWN [Suspect]
     Indication: SINUSITIS
     Dosage: 1 TABLET DAILY
     Route: 048
     Dates: start: 20121231, end: 20130106

REACTIONS (5)
  - Musculoskeletal pain [None]
  - Photophobia [None]
  - Visual impairment [None]
  - Migraine [None]
  - Benign intracranial hypertension [None]
